FAERS Safety Report 15868570 (Version 1)
Quarter: 2019Q1

REPORT INFORMATION
  Report Type: Spontaneous
  Country: JP (occurrence: JP)
  Receive Date: 20190125
  Receipt Date: 20190125
  Transmission Date: 20190417
  Serious: Yes (Death, Hospitalization)
  Sender: FDA-Public Use
  Company Number: JP-BAYER-2019-014479

PATIENT
  Age: 7 Decade
  Sex: Female

DRUGS (1)
  1. STIVARGA [Suspect]
     Active Substance: REGORAFENIB
     Indication: COLORECTAL CANCER RECURRENT
     Dosage: 120 MG, QD
     Route: 048
     Dates: start: 20181206, end: 20181220

REACTIONS (5)
  - Disseminated intravascular coagulation [Fatal]
  - C-reactive protein increased [Fatal]
  - Liver function test increased [Fatal]
  - Platelet count decreased [Fatal]
  - Fibrin D dimer increased [Fatal]

NARRATIVE: CASE EVENT DATE: 20181220
